FAERS Safety Report 13383249 (Version 1)
Quarter: 2017Q1

REPORT INFORMATION
  Report Type: Spontaneous
  Country: US (occurrence: US)
  Receive Date: 20170329
  Receipt Date: 20170329
  Transmission Date: 20170429
  Serious: No
  Sender: FDA-Public Use
  Company Number: US-009507513-1702USA012191

PATIENT
  Age: 23 Year
  Sex: Female
  Weight: 72.56 kg

DRUGS (1)
  1. NEXPLANON [Suspect]
     Active Substance: ETONOGESTREL
     Indication: CONTRACEPTION
     Dosage: 1 DF, 3 YEAR IMPLANT ON THE LEFT ARM
     Route: 059

REACTIONS (3)
  - Limb discomfort [Unknown]
  - Hypoaesthesia [Unknown]
  - Device breakage [Unknown]
